FAERS Safety Report 11559237 (Version 1)
Quarter: 2015Q3

REPORT INFORMATION
  Report Type: Spontaneous
  Country: US (occurrence: None)
  Receive Date: 20150925
  Receipt Date: 20150925
  Transmission Date: 20151125
  Serious: Yes (Other)
  Sender: FDA-Public Use
  Company Number: None

PATIENT
  Age: 56 Year
  Sex: Male
  Weight: 107 kg

DRUGS (2)
  1. PHENYLEPHRINE [Suspect]
     Active Substance: PHENYLEPHRINE\PHENYLEPHRINE HYDROCHLORIDE
     Indication: PREOPERATIVE CARE
     Dosage: 1 DROP Q 5 MINUTES X 3
     Route: 047
     Dates: start: 20150924, end: 20150924
  2. PLASTIC EYE DROPPER BOTTLE [Suspect]
     Active Substance: DEVICE

REACTIONS (1)
  - Product dropper issue [None]

NARRATIVE: CASE EVENT DATE: 20150924
